FAERS Safety Report 20775390 (Version 1)
Quarter: 2022Q2

REPORT INFORMATION
  Report Type: Spontaneous
  Country: US (occurrence: US)
  Receive Date: 20220502
  Receipt Date: 20220502
  Transmission Date: 20220721
  Serious: No
  Sender: FDA-Public Use
  Company Number: US-BAYER-2022A062697

PATIENT
  Age: 65 Year
  Sex: Female

DRUGS (3)
  1. ESTRADIOL HEMIHYDRATE [Suspect]
     Active Substance: ESTRADIOL HEMIHYDRATE
     Dosage: UNK
     Route: 062
  2. AVALIDE [Concomitant]
     Active Substance: HYDROCHLOROTHIAZIDE\IRBESARTAN
  3. CELECOXIB [Concomitant]
     Active Substance: CELECOXIB

REACTIONS (4)
  - Hot flush [None]
  - Headache [None]
  - Nervousness [None]
  - Incorrect dose administered by product [None]
